FAERS Safety Report 25042069 (Version 1)
Quarter: 2025Q1

REPORT INFORMATION
  Report Type: Spontaneous
  Country: RO (occurrence: RO)
  Receive Date: 20250305
  Receipt Date: 20250305
  Transmission Date: 20250408
  Serious: Yes (Other)
  Sender: MYLAN
  Company Number: RO-SUN PHARMACEUTICAL INDUSTRIES LTD-2025R1-495511

PATIENT
  Age: 56 Year
  Sex: Male

DRUGS (3)
  1. EVEROLIMUS [Suspect]
     Active Substance: EVEROLIMUS
     Indication: Neuroendocrine tumour
     Dosage: 10 MILLIGRAM, QD (DAILY)
  2. OCTREOTIDE [Suspect]
     Active Substance: OCTREOTIDE
     Indication: Neuroendocrine tumour
     Dosage: 20 MILLIGRAM, MONTHLY
  3. OCTREOTIDE [Suspect]
     Active Substance: OCTREOTIDE

REACTIONS (5)
  - Ascites [Unknown]
  - Disease progression [Unknown]
  - Gastrointestinal haemorrhage [Unknown]
  - Diarrhoea [Unknown]
  - Weight decreased [Unknown]
